FAERS Safety Report 18618447 (Version 1)
Quarter: 2020Q4

REPORT INFORMATION
  Report Type: Spontaneous
  Country: US (occurrence: US)
  Receive Date: 20201215
  Receipt Date: 20201215
  Transmission Date: 20210114
  Serious: Yes (Hospitalization)
  Sender: FDA-Public Use
  Company Number: US-FRESENIUS KABI-FK202013241

PATIENT
  Age: 77 Year
  Sex: Male

DRUGS (11)
  1. DOXORUBICIN (MANUFACTURER UNKNOWN) [Suspect]
     Active Substance: DOXORUBICIN
     Dosage: SECOND ROUND AFTER 3 WEEKS
     Route: 065
  2. METRONIDAZOLE. [Concomitant]
     Active Substance: METRONIDAZOLE
     Indication: PROPHYLAXIS
     Dosage: WITHIN 1 HOUR OF TACE
     Route: 065
  3. DEXAMETHASONE. [Concomitant]
     Active Substance: DEXAMETHASONE
     Indication: PROPHYLAXIS
     Dosage: WITHIN 1 HOUR OF TACE
     Route: 065
  4. ETHIODIZED OIL [Suspect]
     Active Substance: ETHIODIZED OIL
     Indication: HEPATOCELLULAR CARCINOMA
     Dosage: FIRST ROUND AFTER 1 WEEK
     Route: 065
  5. DOXORUBICIN (MANUFACTURER UNKNOWN) [Suspect]
     Active Substance: DOXORUBICIN
     Indication: HEPATOCELLULAR CARCINOMA
     Dosage: FIRST ROUND AFTER 1 WEEK
     Route: 065
  6. ETHIODIZED OIL [Suspect]
     Active Substance: ETHIODIZED OIL
     Dosage: SECOND ROUND AFTER 3 WEEKS
     Route: 065
  7. MITOMYCIN. [Suspect]
     Active Substance: MITOMYCIN
     Indication: HEPATOCELLULAR CARCINOMA
     Dosage: FIRST ROUND AFTER 1 WEEK
     Route: 065
  8. DIPHENHYDRAMINE. [Concomitant]
     Active Substance: DIPHENHYDRAMINE
     Indication: PROPHYLAXIS
     Dosage: WITHIN 1 HOUR OF TACE
     Route: 065
  9. ONDANSETRON [Concomitant]
     Active Substance: ONDANSETRON
     Indication: PROPHYLAXIS
     Dosage: WITHIN 1 HOUR OF TACE
     Route: 065
  10. MITOMYCIN. [Suspect]
     Active Substance: MITOMYCIN
     Dosage: SECOND ROUND AFTER 3 WEEKS
     Route: 065
  11. CEFAZOLIN [Concomitant]
     Active Substance: CEFAZOLIN
     Indication: PROPHYLAXIS
     Dosage: WITHIN 1 HOUR OF TACE
     Route: 065

REACTIONS (2)
  - Hypersensitivity [Recovered/Resolved]
  - Post embolisation syndrome [Recovered/Resolved]
